FAERS Safety Report 22217555 (Version 1)
Quarter: 2023Q2

REPORT INFORMATION
  Report Type: Other
  Country: JP (occurrence: None)
  Receive Date: 20230417
  Receipt Date: 20230417
  Transmission Date: 20230721
  Serious: Yes (Hospitalization, Other)
  Sender: FDA-Public Use
  Company Number: JP-ROCHE-3330647

PATIENT
  Age: 72 Year
  Sex: Female

DRUGS (8)
  1. RITUXIMAB [Suspect]
     Active Substance: RITUXIMAB
     Indication: Ocular lymphoma
     Route: 065
  2. RITUXIMAB [Suspect]
     Active Substance: RITUXIMAB
     Indication: Spinal cord neoplasm
     Dosage: 2 CYCLES
     Route: 065
  3. METHOTREXATE [Suspect]
     Active Substance: METHOTREXATE
     Indication: Ocular lymphoma
     Route: 050
  4. PROCARBAZINE [Suspect]
     Active Substance: PROCARBAZINE
     Indication: Ocular lymphoma
     Dosage: FIVE CYCLES
     Route: 065
  5. VINCRISTINE [Suspect]
     Active Substance: VINCRISTINE
     Indication: Ocular lymphoma
     Dosage: FIVE CYCLES
     Route: 065
  6. CYTARABINE [Suspect]
     Active Substance: CYTARABINE
     Indication: Ocular lymphoma
     Dosage: 2 CYCLES
     Route: 065
  7. CYTARABINE [Suspect]
     Active Substance: CYTARABINE
     Indication: Spinal cord neoplasm
  8. TIRABRUTINIB [Suspect]
     Active Substance: TIRABRUTINIB
     Indication: Spinal cord neoplasm
     Route: 048

REACTIONS (2)
  - Pneumonia aspiration [Unknown]
  - Disease progression [Unknown]
